FAERS Safety Report 16675649 (Version 1)
Quarter: 2019Q3

REPORT INFORMATION
  Report Type: Report from Study
  Country: US (occurrence: US)
  Receive Date: 20190806
  Receipt Date: 20190806
  Transmission Date: 20191004
  Serious: Yes (Other)
  Sender: FDA-Public Use
  Company Number: US-BEH-2019105175

PATIENT
  Age: 46 Year
  Sex: Female
  Weight: 56.69 kg

DRUGS (2)
  1. HAEGARDA [Suspect]
     Active Substance: HUMAN C1-ESTERASE INHIBITOR
     Indication: HEREDITARY ANGIOEDEMA
     Dosage: 3000 INTERNATIONAL UNIT, BIW (REPORTED AS EVERY 3 TO 4 DAYS)
     Route: 065
     Dates: start: 20190611
  2. HAEGARDA [Suspect]
     Active Substance: HUMAN C1-ESTERASE INHIBITOR
     Indication: PROPHYLAXIS
     Dosage: 3000 INTERNATIONAL UNIT, BIW (REPORTED AS EVERY 3 TO 4 DAYS)
     Route: 065
     Dates: start: 20190716

REACTIONS (10)
  - Flushing [Unknown]
  - Cardiovascular symptom [Unknown]
  - Feeling hot [Unknown]
  - Hereditary angioedema [Unknown]
  - Infusion related reaction [Unknown]
  - Visual impairment [Unknown]
  - Monoplegia [Unknown]
  - Hyperhidrosis [Unknown]
  - Presyncope [Unknown]
  - Dizziness [Unknown]

NARRATIVE: CASE EVENT DATE: 20190630
